FAERS Safety Report 24575925 (Version 1)
Quarter: 2024Q4

REPORT INFORMATION
  Report Type: Spontaneous
  Country: US (occurrence: None)
  Receive Date: 20241102
  Receipt Date: 20241102
  Transmission Date: 20250114
  Serious: Yes (Other)
  Sender: Public
  Company Number: None

PATIENT
  Age: 48 Year
  Sex: Female

DRUGS (24)
  1. AJOVY [Suspect]
     Active Substance: FREMANEZUMAB-VFRM
     Indication: Migraine
     Dates: start: 20241101
  2. ACETAMINOPHEN\OXYCODONE HYDROCHLORIDE [Concomitant]
     Active Substance: ACETAMINOPHEN\OXYCODONE HYDROCHLORIDE
  3. mupirocin 2 % oint [Concomitant]
  4. NORETHINDRONE [Concomitant]
     Active Substance: NORETHINDRONE
  5. TOPIRAMATE [Concomitant]
     Active Substance: TOPIRAMATE
  6. LEVOTHYROXINE [Concomitant]
     Active Substance: LEVOTHYROXINE
  7. SPIRONOLACTONE [Concomitant]
     Active Substance: SPIRONOLACTONE
  8. TIZANIDINE [Concomitant]
     Active Substance: TIZANIDINE
  9. LIDOCAINE [Concomitant]
     Active Substance: LIDOCAINE
  10. DICYCLOMINE [Concomitant]
     Active Substance: DICYCLOMINE HYDROCHLORIDE
  11. BUSPIRONE [Concomitant]
     Active Substance: BUSPIRONE HYDROCHLORIDE
  12. ESOMEPRAZOLE [Concomitant]
     Active Substance: ESOMEPRAZOLE
  13. DULOXETINE [Concomitant]
     Active Substance: DULOXETINE
  14. ALBUTEROL [Concomitant]
     Active Substance: ALBUTEROL
  15. lidocaine 5 % Crea [Concomitant]
  16. PROMETHAZINE [Concomitant]
     Active Substance: PROMETHAZINE HYDROCHLORIDE
  17. ONDANSETRON [Concomitant]
     Active Substance: ONDANSETRON
  18. TUMS [Concomitant]
     Active Substance: CALCIUM CARBONATE
  19. CYANOCOBALAMIN [Concomitant]
     Active Substance: CYANOCOBALAMIN
  20. MAGNESIUM OXIDE [Concomitant]
     Active Substance: MAGNESIUM OXIDE
  21. PNV no.95/ferrous fum/folic ac (PRENATAL MULTIVITAMINS ORAL [Concomitant]
  22. BIOTIN [Concomitant]
     Active Substance: BIOTIN
  23. VITAMIN D3 [Concomitant]
     Active Substance: CHOLECALCIFEROL
  24. DOCUSATE SODIUM [Concomitant]
     Active Substance: DOCUSATE SODIUM

REACTIONS (7)
  - Nipple pain [None]
  - Heart rate irregular [None]
  - Dyspnoea [None]
  - Feeling abnormal [None]
  - Angina pectoris [None]
  - Arthralgia [None]
  - Feeling abnormal [None]

NARRATIVE: CASE EVENT DATE: 20241101
